FAERS Safety Report 8939223 (Version 1)
Quarter: 2012Q4

REPORT INFORMATION
  Report Type: 
  Country: US (occurrence: US)
  Receive Date: 20121203
  Receipt Date: 20121203
  Transmission Date: 20130627
  Serious: No
  Sender: FDA-Public Use
  Company Number: US-PFIZER INC-2012300849

PATIENT
  Sex: Female
  Weight: 68.03 kg

DRUGS (6)
  1. LIPITOR [Suspect]
     Dosage: UNK
  2. HYDROCHLOROTHIAZIDE [Suspect]
     Dosage: UNK
  3. TOPROL XL [Suspect]
     Dosage: UNK
  4. AMBIEN [Suspect]
     Dosage: UNK daily
  5. AVASTIN [Suspect]
     Indication: MACULAR DEGENERATION
     Dosage: UNK, once a month
  6. SYNTHROID [Suspect]
     Dosage: UNK

REACTIONS (1)
  - Hyperhidrosis [Not Recovered/Not Resolved]
